FAERS Safety Report 6305980-5 (Version None)
Quarter: 2009Q3

REPORT INFORMATION
  Report Type: 
  Country: None (occurrence: None)
  Receive Date: 20090812
  Receipt Date: 20090731
  Transmission Date: 20100115
  Serious: Yes (Hospitalization)
  Sender: FDA-Public Use
  Company Number: US-PFIZER INC-2009200770

PATIENT
  Sex: Female
  Weight: 34 kg

DRUGS (24)
  1. SUNITINIB MALATE [Suspect]
     Indication: BREAST CANCER
     Dosage: 25 MG, 1X/DAY
     Dates: start: 20081121, end: 20090417
  2. CAPECITABINE [Suspect]
     Indication: BREAST CANCER
     Dosage: TWICE DAILY, DAY1-14, EVERY 3 WEEKS
     Route: 048
     Dates: start: 20080209, end: 20081107
  3. MOMETASONE FUROATE [Concomitant]
     Dosage: TWO PUFFS DAILY AS NEEDED
     Route: 055
     Dates: start: 20040101
  4. DIAZEPAM [Concomitant]
     Dosage: 5 MG, AT BEDTIME
     Route: 048
     Dates: start: 20070501
  5. ZANTAC [Concomitant]
     Dosage: 75 MG, 2X/DAY
     Route: 048
     Dates: start: 20070101
  6. BACTROBAN [Concomitant]
     Dosage: AS NEEDED
     Route: 045
  7. SODIUM CHLORIDE [Concomitant]
     Dosage: AS NEEDED
     Route: 045
  8. ATENOLOL [Concomitant]
     Dosage: 25 MG, 1X/DAY
     Route: 048
     Dates: start: 20040101
  9. IMODIUM [Concomitant]
     Dosage: 5 MG, AS NEEDED
     Route: 048
     Dates: start: 20070201
  10. KYTRIL [Concomitant]
     Dosage: 1 MG, AS NEEDED
     Route: 048
     Dates: start: 20070222
  11. ALBUTEROL [Concomitant]
     Dosage: TWO PUFFS, AS NEEDED
     Route: 055
     Dates: start: 20080318
  12. MUCINEX [Concomitant]
     Dosage: 1200 MG, 1X/DAY
  13. LOMOTIL [Concomitant]
     Dosage: AS NEEDED
  14. MULTI-VITAMINS [Concomitant]
     Dosage: THREE TABLETS, THREE TIMES A DAILY
     Route: 048
     Dates: start: 20080201
  15. LOVAZA [Concomitant]
     Dosage: UNK
     Route: 048
     Dates: start: 20080201
  16. COMPAZINE [Concomitant]
     Dosage: 10 MG, EVERY 4 HRS, AS NEEDED
     Route: 048
     Dates: start: 20070201
  17. ANTIVERT ^PFIZER^ [Concomitant]
     Dosage: 25 MG, 3X/DAY
     Route: 048
     Dates: start: 20090213
  18. PERCOCET [Concomitant]
     Dosage: EVERY 4 HOURS AS NEEDED
     Route: 048
     Dates: start: 20081003
  19. OXYCONTIN [Concomitant]
     Dosage: 20MG WITH BREAKFAST, 30MG WITH BEDTIME
     Route: 048
     Dates: start: 20090112
  20. SYNTHROID [Concomitant]
     Dosage: 100 MG, 1X/DAY
     Route: 048
     Dates: start: 20090301
  21. EFFEXOR [Concomitant]
     Dosage: 75 MG, 1X/DAY
     Route: 048
     Dates: start: 20070613
  22. ROCEPHIN [Concomitant]
     Dosage: 1 G, 1X/DAY
  23. TOBRADEX [Concomitant]
     Dosage: UNK
     Route: 047
     Dates: start: 20080324, end: 20080330
  24. SOLU-MEDROL [Concomitant]
     Dosage: EVERY 12 HOURS FOR FOUR DOSES

REACTIONS (1)
  - SYNCOPE [None]
